FAERS Safety Report 8432772-3 (Version None)
Quarter: 2012Q2

REPORT INFORMATION
  Report Type: 
  Country: None (occurrence: None)
  Receive Date: 20120613
  Receipt Date: 20120608
  Transmission Date: 20120825
  Serious: Yes (Other)
  Sender: FDA-Public Use
  Company Number: US-PFIZER INC-2009314320

PATIENT
  Sex: Female

DRUGS (7)
  1. DILANTIN [Suspect]
     Dosage: 100 MG, 1 CAPSULE EVERY DAY BEFORE NOON AND 2 CAPSULES AT BED TIME
     Route: 048
  2. DILANTIN [Suspect]
     Dosage: 100 MG, 3 CAPSULES EVERY DAY
     Route: 048
     Dates: start: 20070910
  3. DILANTIN [Suspect]
     Dosage: 100 MG, 4 CAPSULES EVERY NIGHT AT BEDTIME
     Route: 048
     Dates: start: 20060427
  4. DILANTIN KAPSEAL [Suspect]
     Dosage: 100 MG, UNK
  5. DILANTIN [Suspect]
     Dosage: 100 MG, 3 CAPSULES EVERY NIGHT AT BEDTIME
     Route: 048
  6. DILANTIN [Suspect]
     Dosage: 100 MG, UNK
     Route: 048
  7. DILANTIN [Suspect]
     Indication: CONVULSION
     Dosage: 100 MG, 3X/DAY
     Route: 048

REACTIONS (1)
  - STEVENS-JOHNSON SYNDROME [None]
